FAERS Safety Report 20570510 (Version 1)
Quarter: 2022Q1

REPORT INFORMATION
  Report Type: Report from Study
  Country: JP (occurrence: JP)
  Receive Date: 20220309
  Receipt Date: 20220309
  Transmission Date: 20220424
  Serious: Yes (Death, Life-Threatening, Hospitalization, Other)
  Sender: FDA-Public Use
  Company Number: JP-AUROBINDO-AUR-APL-2022-007569

PATIENT
  Age: 67 Year
  Sex: Male
  Weight: 64.5 kg

DRUGS (5)
  1. FOLOTYN [Suspect]
     Active Substance: PRALATREXATE
     Indication: Anaplastic large-cell lymphoma
     Dosage: 20 MG/M2
     Route: 042
     Dates: start: 20200220
  2. FOLOTYN [Suspect]
     Active Substance: PRALATREXATE
     Dosage: 30 MG/M2
     Route: 065
     Dates: start: 20200116, end: 20200116
  3. FOLOTYN [Suspect]
     Active Substance: PRALATREXATE
     Dosage: 20 MG/M2
     Route: 065
  4. FOLIC ACID [Concomitant]
     Active Substance: FOLIC ACID
     Indication: Product used for unknown indication
     Dosage: UNK
     Route: 065
  5. CYANOCOBALAMIN [Concomitant]
     Active Substance: CYANOCOBALAMIN
     Indication: Product used for unknown indication
     Dosage: UNK
     Route: 065

REACTIONS (9)
  - Malignant neoplasm progression [Fatal]
  - Infected skin ulcer [Recovering/Resolving]
  - Anaemia [Not Recovered/Not Resolved]
  - Neutrophil count decreased [Not Recovered/Not Resolved]
  - Platelet count decreased [Not Recovered/Not Resolved]
  - Febrile neutropenia [Recovered/Resolved]
  - Disseminated intravascular coagulation [Recovering/Resolving]
  - C-reactive protein increased [Not Recovered/Not Resolved]
  - Pyrexia [Not Recovered/Not Resolved]

NARRATIVE: CASE EVENT DATE: 20200122
